FAERS Safety Report 23520371 (Version 3)
Quarter: 2024Q2

REPORT INFORMATION
  Report Type: Spontaneous
  Country: US (occurrence: US)
  Receive Date: 20240214
  Receipt Date: 20240405
  Transmission Date: 20240716
  Serious: Yes (Other)
  Sender: FDA-Public Use
  Company Number: US-NOVOPROD-1173819

PATIENT
  Sex: Female

DRUGS (1)
  1. LEVEMIR [Suspect]
     Active Substance: INSULIN DETEMIR
     Indication: Type 1 diabetes mellitus
     Dosage: 25 IU, QD (11 UNITS IN AM AND 14 UNITS IN EVENING)
     Route: 058
     Dates: end: 202401

REACTIONS (5)
  - Hypoglycaemic unconsciousness [Recovered/Resolved]
  - Blood glucose increased [Recovered/Resolved]
  - Device delivery system issue [Unknown]
  - Incorrect dose administered by device [Unknown]
  - Device breakage [Unknown]
